FAERS Safety Report 9882979 (Version 2)
Quarter: 2014Q1

REPORT INFORMATION
  Report Type: Spontaneous
  Country: FR (occurrence: FR)
  Receive Date: 20140208
  Receipt Date: 20140218
  Transmission Date: 20141002
  Serious: Yes (Hospitalization)
  Sender: FDA-Public Use
  Company Number: FR-ROCHE-1345683

PATIENT
  Age: 50 Year
  Sex: Female
  Weight: 71 kg

DRUGS (6)
  1. MABTHERA [Suspect]
     Indication: B-CELL LYMPHOMA
     Route: 042
     Dates: start: 20131118, end: 20131121
  2. CORTANCYL [Suspect]
     Indication: B-CELL LYMPHOMA
     Route: 048
     Dates: start: 20131118, end: 20131122
  3. VELCADE [Suspect]
     Indication: B-CELL LYMPHOMA
     Route: 058
     Dates: start: 20131118, end: 20131121
  4. DOXORUBICINE [Suspect]
     Indication: B-CELL LYMPHOMA
     Route: 042
     Dates: start: 20131118, end: 20131121
  5. ENDOXAN [Suspect]
     Indication: B-CELL LYMPHOMA
     Route: 042
     Dates: start: 20131118, end: 20131121
  6. METHOTREXATE [Suspect]
     Indication: B-CELL LYMPHOMA
     Route: 037

REACTIONS (4)
  - Hypokalaemia [Recovered/Resolved]
  - Pancytopenia [Recovered/Resolved]
  - Vomiting [Recovered/Resolved]
  - Diarrhoea [Recovered/Resolved]
